FAERS Safety Report 9437732 (Version 2)
Quarter: 2013Q4

REPORT INFORMATION
  Report Type: Report from Study
  Country: BR (occurrence: BR)
  Receive Date: 20130802
  Receipt Date: 20131030
  Transmission Date: 20140711
  Serious: Yes (Hospitalization, Other)
  Sender: FDA-Public Use
  Company Number: PHHY2013BR082741

PATIENT
  Age: 47 Year
  Sex: Male
  Weight: 82 kg

DRUGS (13)
  1. SANDOSTATIN LAR [Suspect]
     Indication: NEUROENDOCRINE TUMOUR
     Dosage: 20 MG, EVERY 28 DAYS
     Dates: start: 2008
  2. SANDOSTATIN LAR [Suspect]
     Dosage: 30 MG, EVERY 15 DAYS
  3. SANDOSTATIN LAR [Suspect]
     Dosage: 30 MG, EVERY 20 DAYS
     Dates: start: 2010
  4. SANDOSTATIN LAR [Suspect]
     Dosage: 20 MG, EVERY 28 DAYS
  5. METFORMIN [Concomitant]
     Dosage: 9 DF, DAILY
     Route: 048
     Dates: start: 2009
  6. OMEPRAZOLE [Concomitant]
     Indication: GASTRITIS
     Dosage: 4 DF, 2 TABLETS IN MORNING/ 2 TABLETS AT NIGHT
     Route: 048
     Dates: start: 2008
  7. SIMVASTATIN [Concomitant]
     Dosage: 2 DF, EVERY NIGHT
  8. ENALAPRIL [Concomitant]
     Dosage: 2 DF, DAILY
     Route: 048
     Dates: start: 2009
  9. PURAN T4 [Concomitant]
     Dosage: UNK UKN, UNK
     Dates: start: 2009
  10. HYDROCHLOROTHIAZIDE [Concomitant]
     Dosage: 2 DF, DAILY
     Route: 048
     Dates: start: 2012
  11. CIPROFIBRATE [Concomitant]
     Dosage: 1 DF, DAILY
     Route: 048
  12. GLICAZIDA [Concomitant]
     Dosage: 3 DF, DAILY
     Route: 048
  13. LEVOTHYROXINE [Concomitant]
     Dosage: 100 MG, ONCE (2 TABLETS IN MORNING), DAILY
     Route: 048

REACTIONS (11)
  - Oesophageal carcinoma [Recovering/Resolving]
  - Gastrinoma malignant [Recovering/Resolving]
  - Metastases to pancreas [Recovering/Resolving]
  - Metastases to pituitary gland [Recovering/Resolving]
  - Prostate cancer [Unknown]
  - Thyroid cancer [Unknown]
  - Second primary malignancy [Unknown]
  - Oesophageal obstruction [Unknown]
  - Weight decreased [Unknown]
  - Vitamin D decreased [Recovering/Resolving]
  - Application site pain [Unknown]
